FAERS Safety Report 13609620 (Version 1)
Quarter: 2017Q2

REPORT INFORMATION
  Report Type: Spontaneous
  Country: US (occurrence: US)
  Receive Date: 20170602
  Receipt Date: 20170602
  Transmission Date: 20170830
  Serious: No
  Sender: FDA-Public Use
  Company Number: US-PFIZER INC-2942821

PATIENT

DRUGS (1)
  1. DEXTROSE. [Suspect]
     Active Substance: DEXTROSE
     Indication: PRODUCT USED FOR UNKNOWN INDICATION

REACTIONS (3)
  - Laceration [Unknown]
  - Accident at work [Unknown]
  - Product container issue [Unknown]
